FAERS Safety Report 5268469-0 (Version None)
Quarter: 2007Q1

REPORT INFORMATION
  Report Type: 
  Country: None (occurrence: None)
  Receive Date: 20070319
  Receipt Date: 20070307
  Transmission Date: 20070707
  Serious: Yes (Other)
  Sender: FDA-Public Use
  Company Number: PHBS2006JP06347

PATIENT
  Age: 35 Year
  Sex: Female

DRUGS (3)
  1. NEORAL [Suspect]
     Indication: RENAL TRANSPLANT
     Dosage: UNK, UNK
     Route: 048
     Dates: start: 19980901
  2. IMURAN [Concomitant]
     Indication: RENAL TRANSPLANT
     Route: 048
  3. PREDONINE [Concomitant]
     Indication: RENAL TRANSPLANT
     Route: 048

REACTIONS (7)
  - ABORTION MISSED [None]
  - BENIGN HYDATIDIFORM MOLE [None]
  - BLOOD HUMAN CHORIONIC GONADOTROPIN INCREASED [None]
  - CHORIOCARCINOMA [None]
  - DRUG EXPOSURE DURING PREGNANCY [None]
  - FALLOPIAN TUBE OBSTRUCTION [None]
  - UTERINE DILATION AND CURETTAGE [None]
